FAERS Safety Report 8340365-1 (Version None)
Quarter: 2012Q2

REPORT INFORMATION
  Report Type: 
  Country: None (occurrence: None)
  Receive Date: 20120507
  Receipt Date: 20120501
  Transmission Date: 20120825
  Serious: Yes (Life-Threatening, Hospitalization, Other)
  Sender: FDA-Public Use
  Company Number: US-PFIZER INC-2012051786

PATIENT
  Sex: Male

DRUGS (17)
  1. ZYVOX [Suspect]
  2. ADVAIR DISKUS 100/50 [Concomitant]
     Dosage: UNK
     Route: 055
     Dates: start: 20120227
  3. VESICARE [Concomitant]
     Dosage: 10 MG, 1X/DAY
     Route: 048
     Dates: start: 20120227
  4. ZYVOX [Suspect]
     Indication: CELLULITIS
     Dosage: UNK
     Route: 042
     Dates: start: 20120226, end: 20120227
  5. SPIRIVA [Concomitant]
     Dosage: 18 UG, 1X/DAY
     Dates: start: 20120227
  6. ZANTAC [Concomitant]
     Dosage: 50 MG, UNK
     Route: 042
     Dates: start: 20120227, end: 20120227
  7. SOLU-MEDROL [Concomitant]
     Dosage: 125 MG, UNK
     Dates: start: 20120227, end: 20120227
  8. COUMADIN [Concomitant]
     Indication: ATRIAL FIBRILLATION
     Dosage: 5 MG, 1X/DAY
     Route: 048
     Dates: start: 20120227
  9. ZYVOX [Suspect]
     Indication: BACTERIAL INFECTION
  10. ZYVOX [Suspect]
     Dosage: 600 MG, 2X/DAY
     Route: 048
     Dates: start: 20120226, end: 20120227
  11. TIMOPTIC [Concomitant]
     Dosage: UNK
     Route: 047
     Dates: start: 20120227
  12. ZESTRIL [Concomitant]
     Dosage: 40 MG, 1X/DAY
     Route: 048
     Dates: start: 20120227
  13. RHINOCORT [Concomitant]
     Dosage: 8.6 G, 1X/DAY
     Route: 045
  14. LEVOTHROID [Concomitant]
     Dosage: 150 UG, 1X/DAY
     Route: 048
     Dates: start: 20120227
  15. SODIUM CHLORIDE [Concomitant]
     Dosage: 50 ML, UNK
     Route: 042
     Dates: start: 20120227, end: 20120227
  16. LATANOPROST [Concomitant]
     Dosage: 2.5 MI DROPS
     Route: 047
     Dates: start: 20120227
  17. BENADRYL [Concomitant]
     Dosage: 50 MG, UNK
     Dates: start: 20120227, end: 20120227

REACTIONS (2)
  - HYPERSENSITIVITY [None]
  - SWOLLEN TONGUE [None]
